FAERS Safety Report 17173378 (Version 1)
Quarter: 2019Q4

REPORT INFORMATION
  Report Type: Spontaneous
  Country: US (occurrence: US)
  Receive Date: 20191218
  Receipt Date: 20191218
  Transmission Date: 20200122
  Serious: Yes (Hospitalization)
  Sender: FDA-Public Use
  Company Number: None

PATIENT
  Age: 50 Year
  Sex: Female
  Weight: 80.3 kg

DRUGS (1)
  1. NATALIZUMAB [Suspect]
     Active Substance: NATALIZUMAB
     Indication: MULTIPLE SCLEROSIS
     Dosage: ?          OTHER FREQUENCY:EVERY 28 DAYS;?
     Route: 040
     Dates: start: 20191217, end: 20191217

REACTIONS (3)
  - Chest pain [None]
  - Dyspepsia [None]
  - Back pain [None]

NARRATIVE: CASE EVENT DATE: 20191217
